FAERS Safety Report 10533545 (Version 1)
Quarter: 2014Q4

REPORT INFORMATION
  Report Type: Spontaneous
  Country: US (occurrence: US)
  Receive Date: 20141022
  Receipt Date: 20141022
  Transmission Date: 20150529
  Serious: Yes (Other)
  Sender: FDA-Public Use
  Company Number: US-ASTELLAS-2014US014949

PATIENT
  Age: 60 Year
  Sex: Female

DRUGS (1)
  1. PROTOPIC [Suspect]
     Active Substance: TACROLIMUS
     Indication: PSORIATIC ARTHROPATHY
     Dosage: 0.1 UNK, ONCE DAILY
     Route: 061

REACTIONS (8)
  - Oedema peripheral [Unknown]
  - Photosensitivity reaction [Unknown]
  - Coagulopathy [Unknown]
  - Somnolence [Unknown]
  - Temperature intolerance [Unknown]
  - Thyroid disorder [Unknown]
  - Pruritus [Unknown]
  - Off label use [Unknown]
